FAERS Safety Report 25850122 (Version 1)
Quarter: 2025Q3

REPORT INFORMATION
  Report Type: Spontaneous
  Country: US (occurrence: US)
  Receive Date: 20250926
  Receipt Date: 20250926
  Transmission Date: 20251021
  Serious: Yes (Death, Hospitalization, Other)
  Sender: AMGEN
  Company Number: US-AMGEN-USASP2025186765

PATIENT

DRUGS (1)
  1. TALIMOGENE LAHERPAREPVEC [Suspect]
     Active Substance: TALIMOGENE LAHERPAREPVEC
     Indication: Metastatic malignant melanoma
     Route: 065

REACTIONS (7)
  - Death [Fatal]
  - Cellulitis [Unknown]
  - Adverse event [Unknown]
  - Disseminated herpes simplex [Unknown]
  - Metastatic malignant melanoma [Unknown]
  - Therapy partial responder [Unknown]
  - Therapy non-responder [Unknown]
